FAERS Safety Report 7060658-8 (Version None)
Quarter: 2010Q4

REPORT INFORMATION
  Report Type: 
  Country: None (occurrence: None)
  Receive Date: 20101025
  Receipt Date: 20101020
  Transmission Date: 20110411
  Serious: Yes (Life-Threatening)
  Sender: FDA-Public Use
  Company Number: EG-ROCHE-734981

PATIENT
  Sex: Female
  Weight: 60 kg

DRUGS (1)
  1. TRASTUZUMAB [Suspect]
     Indication: BREAST CANCER
     Route: 042
     Dates: start: 20090610, end: 20100805

REACTIONS (1)
  - METASTASES TO CENTRAL NERVOUS SYSTEM [None]
